FAERS Safety Report 9325462 (Version 2)
Quarter: 2013Q2

REPORT INFORMATION
  Report Type: Spontaneous
  Country: US (occurrence: None)
  Receive Date: 20130528
  Receipt Date: 20130607
  Transmission Date: 20140414
  Serious: Yes (Hospitalization)
  Sender: FDA-Public Use
  Company Number: AUR-APL-2013-04274

PATIENT
  Age: 53 Year
  Sex: Female
  Weight: 74.83 kg

DRUGS (2)
  1. METFORMIN [Suspect]
     Indication: DIABETES MELLITUS
     Dates: start: 2013
  2. ZOLOFT [Suspect]
     Indication: DEPRESSION
     Dates: start: 2012

REACTIONS (6)
  - Blood pressure increased [None]
  - Drug ineffective [None]
  - Blood glucose increased [None]
  - Vitamin K decreased [None]
  - Blood phosphorus decreased [None]
  - Diabetes mellitus [None]
